FAERS Safety Report 5211728-8 (Version None)
Quarter: 2007Q1

REPORT INFORMATION
  Report Type: 
  Country: None (occurrence: None)
  Receive Date: 20070116
  Receipt Date: 20070109
  Transmission Date: 20070707
  Serious: Yes (Other)
  Sender: FDA-Public Use
  Company Number: SPV1-2007-00097

PATIENT
  Age: 41 Year
  Sex: Male

DRUGS (1)
  1. DAYTRANA [Suspect]
     Indication: ATTENTION DEFICIT/HYPERACTIVITY DISORDER
     Dosage: 15MG, TRANSDERMAL
     Route: 062
     Dates: start: 20060912, end: 20061222

REACTIONS (3)
  - FATIGUE [None]
  - HAEMATEMESIS [None]
  - TACHYCARDIA [None]
